FAERS Safety Report 10971048 (Version 1)
Quarter: 2015Q1

REPORT INFORMATION
  Report Type: Spontaneous
  Country: US (occurrence: None)
  Receive Date: 20150330
  Receipt Date: 20150330
  Transmission Date: 20150721
  Serious: No
  Sender: FDA-Public Use
  Company Number: None

PATIENT
  Sex: Female

DRUGS (19)
  1. BOSULIF [Suspect]
     Active Substance: BOSUTINIB MONOHYDRATE
     Route: 048
     Dates: start: 20141206
  2. NYSTATIN CREAM [Concomitant]
     Active Substance: NYSTATIN
  3. AMLODIPINE BESYLATE. [Concomitant]
     Active Substance: AMLODIPINE BESYLATE
  4. XOPENEX HFA [Concomitant]
     Active Substance: LEVALBUTEROL TARTRATE
  5. FUROSEMIDE. [Concomitant]
     Active Substance: FUROSEMIDE
  6. LASIX [Concomitant]
     Active Substance: FUROSEMIDE
  7. TYLENOL [Concomitant]
     Active Substance: ACETAMINOPHEN
  8. ALLOPURINOL. [Concomitant]
     Active Substance: ALLOPURINOL
  9. FLUTICASONE [Concomitant]
     Active Substance: FLUTICASONE\FLUTICASONE PROPIONATE
  10. AMITRIPTYLINE [Concomitant]
     Active Substance: AMITRIPTYLINE
  11. ASPIRIN. [Concomitant]
     Active Substance: ASPIRIN
  12. LOSARTAN [Concomitant]
     Active Substance: LOSARTAN
  13. TUDORZA PRESSAIR [Concomitant]
     Active Substance: ACLIDINIUM BROMIDE
  14. ATORVASTATIN [Concomitant]
     Active Substance: ATORVASTATIN
  15. FLOVENT [Concomitant]
     Active Substance: FLUTICASONE PROPIONATE
  16. LIPITOR [Concomitant]
     Active Substance: ATORVASTATIN CALCIUM
  17. NYSTOP [Concomitant]
     Active Substance: NYSTATIN
  18. PROAIR HFA [Concomitant]
     Active Substance: ALBUTEROL SULFATE
  19. ALBUTEROL. [Concomitant]
     Active Substance: ALBUTEROL

REACTIONS (3)
  - Nausea [None]
  - Fatigue [None]
  - Constipation [None]
